FAERS Safety Report 20661979 (Version 1)
Quarter: 2022Q2

REPORT INFORMATION
  Report Type: Report from Study
  Country: JP (occurrence: JP)
  Receive Date: 20220401
  Receipt Date: 20220401
  Transmission Date: 20220721
  Serious: Yes (Other)
  Sender: FDA-Public Use
  Company Number: JP-ORPHANEU-2022001101

PATIENT

DRUGS (10)
  1. PASIREOTIDE [Suspect]
     Active Substance: PASIREOTIDE
     Indication: Pituitary-dependent Cushing^s syndrome
     Dosage: 10 MILLIGRAM, QM (EVERY 4 WEEKS)
     Route: 030
     Dates: start: 20181127, end: 20190319
  2. PASIREOTIDE [Suspect]
     Active Substance: PASIREOTIDE
     Dosage: 20 MILLIGRAM, QM (EVERY 4 WEEKS)
     Route: 030
     Dates: start: 20190416, end: 20190716
  3. PASIREOTIDE [Suspect]
     Active Substance: PASIREOTIDE
     Dosage: 10 MILLIGRAM, QM, (EVERY 4 WEEKS)
     Route: 030
     Dates: start: 20190820
  4. CARVEDILOL [Concomitant]
     Active Substance: CARVEDILOL
     Indication: Disease complication
     Dosage: 10 MILLIGRAM, QD
     Route: 048
  5. AMLODIPINE BESYLATE [Concomitant]
     Active Substance: AMLODIPINE BESYLATE
     Indication: Disease complication
     Dosage: 5 MILLIGRAM, QD
     Route: 048
  6. CABERGOLINE [Concomitant]
     Active Substance: CABERGOLINE
     Indication: Pituitary-dependent Cushing^s syndrome
     Dosage: 0.5 MILLIGRAM, QD
     Route: 048
  7. CABERGOLINE [Concomitant]
     Active Substance: CABERGOLINE
     Dosage: 1 MILLIGRAM, QD
     Route: 048
     Dates: start: 20190319
  8. ZETIA [Concomitant]
     Active Substance: EZETIMIBE
     Indication: Disease complication
     Dosage: 10 MILLIGRAM, QD
     Route: 048
  9. TENELIGLIPTIN [Concomitant]
     Active Substance: TENELIGLIPTIN
     Indication: Disease complication
     Dosage: 20 MILLIGRAM, QD
     Route: 048
     Dates: start: 20181211
  10. NEXIUM [ESOMEPRAZOLE MAGNESIUM TRIHYDRATE] [Concomitant]
     Indication: Disease complication
     Dosage: 10 MILLIGRAM, QD
     Route: 048

REACTIONS (1)
  - Adrenal insufficiency [Recovering/Resolving]

NARRATIVE: CASE EVENT DATE: 20190716
